FAERS Safety Report 12537937 (Version 4)
Quarter: 2017Q2

REPORT INFORMATION
  Report Type: Report from Study
  Country: DE (occurrence: DE)
  Receive Date: 20160707
  Receipt Date: 20170406
  Transmission Date: 20170830
  Serious: Yes (Hospitalization)
  Sender: FDA-Public Use
  Company Number: DE-ROCHE-1755961

PATIENT
  Age: 66 Year
  Sex: Male
  Weight: 75 kg

DRUGS (19)
  1. FLUOROURACIL. [Suspect]
     Active Substance: FLUOROURACIL
     Indication: COLORECTAL CANCER METASTATIC
     Dosage: LAST DOSE PRIOR TO SAE: 26/APR/2016, 400 MG
     Route: 040
     Dates: start: 20160316
  2. MOTILIUM [Concomitant]
     Active Substance: DOMPERIDONE
     Dosage: 25 UNIT
     Route: 065
     Dates: start: 20160409
  3. UNACID [Concomitant]
     Active Substance: AMPICILLIN SODIUM\SULBACTAM SODIUM
     Indication: DEHYDRATION
     Route: 065
     Dates: start: 20160329, end: 20160407
  4. BEVACIZUMAB [Suspect]
     Active Substance: BEVACIZUMAB
     Indication: COLORECTAL CANCER METASTATIC
     Dosage: 5 MG/KG?DATE OF LAST DOSE PRIOR TO SAE: 26/APR/2016
     Route: 042
     Dates: start: 20160316
  5. TAZOBAC [Concomitant]
     Active Substance: PIPERACILLIN SODIUM\TAZOBACTAM SODIUM
     Route: 065
     Dates: start: 20160329, end: 20160329
  6. CANDESARTAN. [Concomitant]
     Active Substance: CANDESARTAN
     Route: 065
  7. TAZOBAC [Concomitant]
     Active Substance: PIPERACILLIN SODIUM\TAZOBACTAM SODIUM
     Route: 065
     Dates: start: 20150417, end: 20160422
  8. CALCIUM FOLINATE [Suspect]
     Active Substance: LEUCOVORIN CALCIUM
     Indication: COLORECTAL CANCER METASTATIC
     Dosage: LAST DOSE PRIOR TO SAE: 26/APR/2016, 400 MG
     Route: 042
     Dates: start: 20160316
  9. FLUOROURACIL. [Suspect]
     Active Substance: FLUOROURACIL
     Dosage: LAST DOSE PRIOR TO SAE: 26/APR/2016, 2400 MG
     Route: 041
     Dates: start: 20160316
  10. CEFUROXIM [Concomitant]
     Active Substance: CEFUROXIME
     Indication: PANCYTOPENIA
     Route: 065
     Dates: start: 20160417, end: 20160422
  11. CANDESARTAN. [Concomitant]
     Active Substance: CANDESARTAN
     Route: 065
     Dates: start: 20160409
  12. NEUPOGEN [Concomitant]
     Active Substance: FILGRASTIM
     Indication: PANCYTOPENIA
     Route: 065
     Dates: start: 20160417, end: 20160422
  13. TAZOBAC [Concomitant]
     Active Substance: PIPERACILLIN SODIUM\TAZOBACTAM SODIUM
     Route: 065
     Dates: start: 20160509, end: 20160516
  14. HCTZ [Concomitant]
     Active Substance: HYDROCHLOROTHIAZIDE
     Route: 065
  15. ONDANSETRON [Concomitant]
     Active Substance: ONDANSETRON
     Route: 065
     Dates: start: 20160409
  16. UNACID [Concomitant]
     Active Substance: AMPICILLIN SODIUM\SULBACTAM SODIUM
     Indication: PNEUMONIA
     Route: 065
     Dates: start: 20160417, end: 20160424
  17. IMODIUM AKUT [Concomitant]
     Active Substance: LOPERAMIDE
     Route: 065
     Dates: start: 20160409
  18. NEUPOGEN [Concomitant]
     Active Substance: FILGRASTIM
     Indication: NEUTROPENIA
     Dosage: 30 UNIT
     Route: 065
     Dates: start: 20160329, end: 20160330
  19. OXALIPLATIN. [Suspect]
     Active Substance: OXALIPLATIN
     Indication: COLORECTAL CANCER METASTATIC
     Dosage: LAST DOSE PRIOR TO SAE: 26/APR/2016, 85 MG
     Route: 042
     Dates: start: 20160316

REACTIONS (1)
  - Gastrointestinal necrosis [Recovered/Resolved]

NARRATIVE: CASE EVENT DATE: 20160509
